FAERS Safety Report 12485392 (Version 1)
Quarter: 2016Q2

REPORT INFORMATION
  Report Type: Spontaneous
  Country: CH (occurrence: CH)
  Receive Date: 20160621
  Receipt Date: 20160621
  Transmission Date: 20160815
  Serious: Yes (Life-Threatening)
  Sender: FDA-Public Use
  Company Number: CH-ROCHE-1777547

PATIENT
  Age: 78 Year
  Sex: Female
  Weight: 66 kg

DRUGS (11)
  1. AKINETON [Concomitant]
     Active Substance: BIPERIDEN HYDROCHLORIDE
     Dosage: 2 MG,  1/2-0-1/2-0
     Route: 048
  2. TORASEMID [Concomitant]
     Active Substance: TORSEMIDE
     Dosage: 5 MG, 2-0-0-0
     Route: 048
  3. ESOMEPRAZOL [Concomitant]
     Active Substance: ESOMEPRAZOLE
     Dosage: 20 MG, 0-0-1-0
     Route: 048
  4. TRANXILIUM [Concomitant]
     Active Substance: CLORAZEPATE DIPOTASSIUM
     Dosage: 20 MG, 0-0-0.5-0
     Route: 048
  5. ROCEPHIN [Suspect]
     Active Substance: CEFTRIAXONE SODIUM
     Indication: CYSTITIS BACTERIAL
     Dosage: 2 G
     Route: 042
     Dates: start: 20160415, end: 20160416
  6. VITAMIN D3 [Concomitant]
     Active Substance: CHOLECALCIFEROL
     Dosage: 0-0-15-0 GTT. DRUG REPORTED AS VITAMIN D3 WILD
     Route: 048
  7. SUPRACYCLIN [Suspect]
     Active Substance: DOXYCYCLINE
     Indication: BRONCHITIS
     Dosage: 200 MG, 0-0-1-0, SUSPECT REPORTED AS SUPRACYCLIN FORTE
     Route: 048
     Dates: start: 20160405, end: 20160413
  8. FRAGMIN [Suspect]
     Active Substance: DALTEPARIN SODIUM
     Indication: PROPHYLAXIS
     Dosage: 5000 IE EINMALIG
     Route: 058
     Dates: start: 20160415, end: 20160416
  9. ISOPTIN [Concomitant]
     Active Substance: VERAPAMIL HYDROCHLORIDE
     Dosage: 80 MG, 1-0-0-0
     Route: 048
  10. MIANSERIN [Concomitant]
     Active Substance: MIANSERIN
     Indication: DEPRESSION
     Dosage: 30 MG,  0-0-0.5-0, DRUG REPORTED AS MIANSERIN-MEPHA 30
     Route: 048
  11. DEANXIT [Concomitant]
     Active Substance: FLUPENTIXOL DIHYDROCHLORIDE\MELITRACEN HYDROCHLORIDE
     Dosage: 1-0-0-0
     Route: 048

REACTIONS (4)
  - Pancytopenia [Recovered/Resolved]
  - Haemolytic anaemia [Recovering/Resolving]
  - Thrombocytopenia [Recovering/Resolving]
  - Leukopenia [Recovering/Resolving]

NARRATIVE: CASE EVENT DATE: 20160415
